FAERS Safety Report 6783686-6 (Version None)
Quarter: 2010Q2

REPORT INFORMATION
  Report Type: 
  Country: None (occurrence: None)
  Receive Date: 20100622
  Receipt Date: 20100615
  Transmission Date: 20101027
  Serious: Yes (Life-Threatening, Hospitalization)
  Sender: FDA-Public Use
  Company Number: US-ROCHE-701762

PATIENT
  Age: 65 Year
  Sex: Female

DRUGS (6)
  1. AVASTIN [Suspect]
     Dosage: HELD FOR SCHEDULED SPINAL SURGERY.
     Route: 065
     Dates: start: 20091005, end: 20091211
  2. AVASTIN [Suspect]
     Dosage: DISCONTINUED.
     Route: 065
     Dates: start: 20100301
  3. TAXOTERE [Concomitant]
     Dates: start: 20091005
  4. CARBOPLATIN [Concomitant]
     Dates: start: 20091005
  5. ALIMTA [Concomitant]
     Dates: start: 20100301
  6. ZOMETA [Concomitant]
     Dates: start: 20100301

REACTIONS (1)
  - SPLENIC RUPTURE [None]
